FAERS Safety Report 16986184 (Version 1)
Quarter: 2019Q4

REPORT INFORMATION
  Report Type: Spontaneous
  Country: US (occurrence: US)
  Receive Date: 20190918
  Receipt Date: 20190918
  Transmission Date: 20200122
  Serious: Yes (Hospitalization)
  Sender: FDA-Public Use
  Company Number: None

PATIENT
  Sex: Female

DRUGS (2)
  1. PROCRIT [Suspect]
     Active Substance: ERYTHROPOIETIN
     Indication: REFRACTORY CYTOPENIA WITH UNILINEAGE DYSPLASIA
     Route: 058
     Dates: start: 20160120
  2. PROCRIT [Suspect]
     Active Substance: ERYTHROPOIETIN
     Indication: IRON DEFICIENCY

REACTIONS (3)
  - Atrial fibrillation [None]
  - Dizziness [None]
  - Nausea [None]
